FAERS Safety Report 18606444 (Version 2)
Quarter: 2021Q1

REPORT INFORMATION
  Report Type: Spontaneous
  Country: US (occurrence: US)
  Receive Date: 20201211
  Receipt Date: 20210312
  Transmission Date: 20210419
  Serious: Yes (Hospitalization)
  Sender: FDA-Public Use
  Company Number: US-ALLERGAN-2047251US

PATIENT
  Sex: Female
  Weight: 116.7 kg

DRUGS (33)
  1. NORCO [Suspect]
     Active Substance: ACETAMINOPHEN\HYDROCODONE BITARTRATE
     Indication: BACK PAIN
  2. VICODIN [Suspect]
     Active Substance: ACETAMINOPHEN\HYDROCODONE BITARTRATE
     Indication: CHEST PAIN
     Dosage: UNK, PRN
     Route: 048
     Dates: start: 20190225
  3. CLOSTRIDIUM DIFFICILE VACCINE THERAPY [INVESTIGATIONAL PRODUCT] [Suspect]
     Active Substance: INVESTIGATIONAL PRODUCT
     Dosage: UNK UNK, SINGLE
     Route: 030
     Dates: start: 20200311, end: 20200311
  4. CLOSTRIDIUM DIFFICILE VACCINE THERAPY [INVESTIGATIONAL PRODUCT] [Suspect]
     Active Substance: INVESTIGATIONAL PRODUCT
     Dosage: UNK UNK, SINGLE
     Route: 030
     Dates: start: 20191016, end: 20191016
  5. PROTONIX [Concomitant]
     Active Substance: PANTOPRAZOLE SODIUM
     Indication: GASTROOESOPHAGEAL REFLUX DISEASE
     Dosage: UNK
     Dates: start: 2016
  6. POTASSIUM CHLORIDE. [Concomitant]
     Active Substance: POTASSIUM CHLORIDE
     Indication: HYPOKALAEMIA
     Dosage: UNK
     Dates: start: 2016
  7. ADVAIR HFA [Concomitant]
     Active Substance: FLUTICASONE PROPIONATE\SALMETEROL XINAFOATE
     Indication: CHRONIC OBSTRUCTIVE PULMONARY DISEASE
     Dosage: UNK
     Dates: start: 2017
  8. LORATADINE. [Concomitant]
     Active Substance: LORATADINE
     Indication: HYPERSENSITIVITY
     Dosage: UNK
     Dates: start: 2017
  9. MELATONIN [Concomitant]
     Active Substance: MELATONIN
     Indication: POST-TRAUMATIC STRESS DISORDER
     Dosage: UNK
     Dates: start: 2018
  10. BENADRYL [Concomitant]
     Active Substance: DIPHENHYDRAMINE HYDROCHLORIDE
     Indication: HYPERSENSITIVITY
     Dosage: UNK
     Dates: start: 2012
  11. ELIQUIS [Suspect]
     Active Substance: APIXABAN
     Indication: CARDIOVASCULAR EVENT PROPHYLAXIS
     Dosage: 5 MG, BID
     Route: 048
     Dates: start: 202008, end: 20200909
  12. ELIQUIS [Suspect]
     Active Substance: APIXABAN
     Indication: DEEP VEIN THROMBOSIS
     Dosage: UNK
     Route: 048
     Dates: start: 20200722, end: 20200811
  13. DEPAKOTE [Concomitant]
     Active Substance: DIVALPROEX SODIUM
     Indication: POST-TRAUMATIC STRESS DISORDER
     Dosage: UNK
     Dates: start: 2018
  14. METOPROLOL. [Concomitant]
     Active Substance: METOPROLOL
     Indication: HYPERTENSION
     Dosage: UNK
     Dates: start: 202006
  15. IRON [Concomitant]
     Active Substance: IRON
     Indication: ANAEMIA
     Dosage: UNK
     Dates: start: 20200101
  16. PAXIL [Concomitant]
     Active Substance: PAROXETINE HYDROCHLORIDE
     Indication: ANXIETY
     Dosage: UNK
     Dates: start: 2015
  17. SEROQUEL [Concomitant]
     Active Substance: QUETIAPINE FUMARATE
     Indication: ANXIETY
     Dosage: UNK
     Dates: start: 2016
  18. REQUIP [Concomitant]
     Active Substance: ROPINIROLE HYDROCHLORIDE
     Indication: RESTLESS LEGS SYNDROME
     Dosage: UNK
     Dates: start: 2016
  19. CLOSTRIDIUM DIFFICILE VACCINE THERAPY [INVESTIGATIONAL PRODUCT] [Suspect]
     Active Substance: INVESTIGATIONAL PRODUCT
     Dosage: UNK UNK, SINGLE
     Route: 030
     Dates: start: 20190917, end: 20190917
  20. ASPIRIN. [Concomitant]
     Active Substance: ASPIRIN
     Indication: CARDIOVASCULAR EVENT PROPHYLAXIS
     Dosage: UNK
     Dates: start: 2015
  21. IRON [Concomitant]
     Active Substance: IRON
     Dosage: UNK
     Route: 042
     Dates: start: 20200911, end: 20200911
  22. GABAPENTIN. [Suspect]
     Active Substance: GABAPENTIN
     Indication: NEUROPATHY PERIPHERAL
     Dosage: ACTUAL: AS NEEDED
     Route: 048
     Dates: start: 20200114
  23. IRON [Concomitant]
     Active Substance: IRON
     Dosage: UNK
     Route: 042
     Dates: start: 20200916, end: 20200916
  24. CLOSTRIDIUM DIFFICILE VACCINE THERAPY [INVESTIGATIONAL PRODUCT] [Suspect]
     Active Substance: INVESTIGATIONAL PRODUCT
     Indication: CLOSTRIDIUM DIFFICILE IMMUNISATION
     Dosage: UNK UNK, SINGLE
     Route: 030
     Dates: start: 20201103, end: 20201103
  25. IBUPROFEN. [Concomitant]
     Active Substance: IBUPROFEN
     Indication: PAIN
     Dosage: UNK
     Dates: start: 2014
  26. LASIX [Concomitant]
     Active Substance: FUROSEMIDE
     Indication: OEDEMA PERIPHERAL
     Dosage: UNK
     Dates: start: 2015
  27. ZANTAC [Concomitant]
     Active Substance: RANITIDINE HYDROCHLORIDE
     Indication: GASTROOESOPHAGEAL REFLUX DISEASE
     Dosage: 150 MG, PRN
     Route: 048
     Dates: start: 2014, end: 201912
  28. NORCO [Suspect]
     Active Substance: ACETAMINOPHEN\HYDROCODONE BITARTRATE
     Indication: ARTHRALGIA
     Dosage: 1 DF, PRN
     Route: 048
     Dates: start: 20190225
  29. XANAX [Suspect]
     Active Substance: ALPRAZOLAM
     Indication: ANXIETY
     Dosage: 0.5 MG, PRN
     Route: 048
     Dates: start: 2017
  30. ALBUTEROL. [Concomitant]
     Active Substance: ALBUTEROL
     Indication: CHRONIC OBSTRUCTIVE PULMONARY DISEASE
     Dosage: UNK
     Dates: start: 2014
  31. IRON [Concomitant]
     Active Substance: IRON
     Dosage: UNK
     Route: 042
     Dates: start: 20200910, end: 20200910
  32. FIORICET [Concomitant]
     Active Substance: ACETAMINOPHEN\BUTALBITAL\CAFFEINE
     Indication: MIGRAINE
     Dosage: UNK
     Dates: start: 2016
  33. ATORVASTATIN [Concomitant]
     Active Substance: ATORVASTATIN
     Indication: HYPERLIPIDAEMIA
     Dosage: UNK
     Dates: start: 20200114

REACTIONS (2)
  - Metabolic encephalopathy [Recovered/Resolved]
  - Urinary tract infection [Recovered/Resolved]

NARRATIVE: CASE EVENT DATE: 20200908
